FAERS Safety Report 16689866 (Version 1)
Quarter: 2019Q3

REPORT INFORMATION
  Report Type: Spontaneous
  Country: US (occurrence: US)
  Receive Date: 20190809
  Receipt Date: 20190809
  Transmission Date: 20191004
  Serious: Yes (Hospitalization, Other)
  Sender: FDA-Public Use
  Company Number: US-ELI_LILLY_AND_COMPANY-US201907016200

PATIENT
  Sex: Female

DRUGS (2)
  1. INSULIN [Concomitant]
     Active Substance: INSULIN NOS
     Indication: TYPE 2 DIABETES MELLITUS
  2. TRULICITY [Suspect]
     Active Substance: DULAGLUTIDE
     Indication: TYPE 2 DIABETES MELLITUS
     Dosage: UNK UNK, UNKNOWN
     Route: 065
     Dates: start: 2018

REACTIONS (8)
  - Dehydration [Unknown]
  - Blood glucose increased [Unknown]
  - Cystitis [Unknown]
  - Renal failure [Recovering/Resolving]
  - Hypophagia [Unknown]
  - Constipation [Recovering/Resolving]
  - General physical health deterioration [Recovering/Resolving]
  - Fluid intake reduced [Unknown]
